FAERS Safety Report 12455193 (Version 1)
Quarter: 2016Q2

REPORT INFORMATION
  Report Type: Spontaneous
  Country: US (occurrence: None)
  Receive Date: 20160609
  Receipt Date: 20160609
  Transmission Date: 20160815
  Serious: Yes (Other)
  Sender: FDA-Public Use
  Company Number: None

PATIENT
  Age: 56 Year
  Sex: Male

DRUGS (1)
  1. SPIRONOLACTONE, 25MG PAR [Suspect]
     Active Substance: SPIRONOLACTONE
     Indication: BLOOD PRESSURE MEASUREMENT
     Route: 048
     Dates: start: 20150903, end: 20160531

REACTIONS (3)
  - Erectile dysfunction [None]
  - Gynaecomastia [None]
  - Alopecia [None]

NARRATIVE: CASE EVENT DATE: 20160607
